FAERS Safety Report 7109450 (Version 2)
Quarter: 2014Q2

REPORT INFORMATION
  Report Type: Spontaneous
  Country: GR (occurrence: None)
  Receive Date: 20090827
  Receipt Date: 20140415
  Transmission Date: 20141212
  Serious: Yes (Hospitalization, Other)
  Sender: FDA-Public Use
  Company Number: AUR-APL-2009-00419

PATIENT
  Age: 73 Year
  Sex: Male

DRUGS (1)
  1. AMLODIPINE (AMLODIPINE) [Suspect]
     Indication: HYPERTENSION
     Dosage: 10MG - DAILY

REACTIONS (8)
  - Hypertension [None]
  - Hypokalaemia [None]
  - Rhabdomyolysis [None]
  - Metabolic alkalosis [None]
  - Adrenal mass [None]
  - Primary hyperaldosteronism [None]
  - Adrenal adenoma [None]
  - Hyperadrenalism [None]
